FAERS Safety Report 9505977 (Version 1)
Quarter: 2013Q1

REPORT INFORMATION
  Report Type: Spontaneous
  Country: US (occurrence: None)
  Receive Date: 20130305
  Receipt Date: 20130305
  Transmission Date: 20140127
  Serious: Yes (Hospitalization, Other)
  Sender: FDA-Public Use
  Company Number: 1000040349

PATIENT
  Age: 72 Year
  Sex: 0

DRUGS (1)
  1. DALIRESP(ROFLUMILAST) [Suspect]
     Indication: CHRONIC OBSTRUCTIVE PULMONARY DISEASE
     Route: 048
     Dates: start: 201107, end: 201208

REACTIONS (1)
  - Pancreatitis [None]
